FAERS Safety Report 7732765-5 (Version None)
Quarter: 2011Q3

REPORT INFORMATION
  Report Type: 
  Country: None (occurrence: None)
  Receive Date: 20110819
  Receipt Date: 20110805
  Transmission Date: 20111222
  Serious: Yes (Hospitalization)
  Sender: FDA-Public Use
  Company Number: ALB-004-11-FR

PATIENT
  Age: 69 Year
  Sex: Female

DRUGS (1)
  1. ALBUMIN (HUMAN) [Suspect]
     Indication: T-CELL LYMPHOMA STAGE III
     Dosage: 100 ML - 1 X 1 / D INTRAVENOUS (NOT OTHERWISE SPECIFIED)
     Route: 042
     Dates: start: 20110729, end: 20110729

REACTIONS (4)
  - ACUTE PULMONARY OEDEMA [None]
  - SKIN DISCOLOURATION [None]
  - HYPOXIA [None]
  - HYPERTENSION [None]
